FAERS Safety Report 10946525 (Version 1)
Quarter: 2015Q1

REPORT INFORMATION
  Report Type: Spontaneous
  Country: DE (occurrence: DE)
  Receive Date: 20150323
  Receipt Date: 20150323
  Transmission Date: 20150721
  Serious: Yes (Hospitalization, Other)
  Sender: FDA-Public Use
  Company Number: US-ASTRAZENECA-2015SE25321

PATIENT
  Age: 134 Day
  Sex: Male
  Weight: 3.2 kg

DRUGS (7)
  1. URSOFALK [Concomitant]
     Active Substance: URSODIOL
     Indication: PRODUCT USED FOR UNKNOWN INDICATION
     Route: 048
  2. VIGANTOLETTEN [Concomitant]
     Active Substance: CHOLECALCIFEROL
     Indication: PRODUCT USED FOR UNKNOWN INDICATION
     Route: 048
  3. PALIVIZUMAB [Suspect]
     Active Substance: PALIVIZUMAB
     Indication: ANTIVIRAL PROPHYLAXIS
     Dosage: FOR 28 DAYS
     Route: 030
     Dates: start: 20141014
  4. HCT [Concomitant]
     Active Substance: HYDROCHLOROTHIAZIDE
     Indication: PRODUCT USED FOR UNKNOWN INDICATION
     Route: 048
  5. FERROSANOL [Concomitant]
     Active Substance: FERROUS GLUCONATE
     Indication: PRODUCT USED FOR UNKNOWN INDICATION
     Dosage: 3 GGT THRICE A DAY
  6. DIAZOXID [Concomitant]
     Indication: PRODUCT USED FOR UNKNOWN INDICATION
     Route: 048
  7. NACL [Concomitant]
     Active Substance: SODIUM CHLORIDE
     Indication: PRODUCT USED FOR UNKNOWN INDICATION
     Route: 048

REACTIONS (18)
  - Hypercapnia [Not Recovered/Not Resolved]
  - Blood glucose increased [Recovered/Resolved]
  - Respiratory arrest [Recovered/Resolved]
  - Acute respiratory failure [Recovered/Resolved]
  - Restlessness [Recovered/Resolved]
  - Hypoventilation [Recovering/Resolving]
  - Klebsiella infection [Unknown]
  - Pulmonary congestion [Recovering/Resolving]
  - Hypoglycaemia [Unknown]
  - Salivary hypersecretion [Unknown]
  - Cyanosis [Recovered/Resolved]
  - Pneumonia respiratory syncytial viral [Recovered/Resolved]
  - Staphylococcal infection [Unknown]
  - Hypothermia [Recovered/Resolved]
  - Asthenia [Recovered/Resolved]
  - Acidosis [Unknown]
  - Abdominal distension [Unknown]
  - Respiratory syncytial virus infection [Unknown]

NARRATIVE: CASE EVENT DATE: 20141016
